FAERS Safety Report 8914930 (Version 1)
Quarter: 2012Q4

REPORT INFORMATION
  Report Type: 
  Country: US (occurrence: US)
  Receive Date: 20121119
  Receipt Date: 20121119
  Transmission Date: 20130627
  Serious: Yes (Other)
  Sender: FDA-Public Use
  Company Number: US-ROCHE-791058

PATIENT
  Sex: Female
  Weight: 49.94 kg

DRUGS (3)
  1. ACCUTANE [Suspect]
     Indication: ACNE CYSTIC
     Route: 065
     Dates: start: 1988, end: 1989
  2. ACCUTANE [Suspect]
     Route: 065
     Dates: start: 1990, end: 1991
  3. ACCUTANE [Suspect]
     Route: 065
     Dates: start: 19920206, end: 199206

REACTIONS (4)
  - Colitis ulcerative [Unknown]
  - Inflammatory bowel disease [Unknown]
  - Emotional distress [Not Recovered/Not Resolved]
  - Irritable bowel syndrome [Unknown]
